FAERS Safety Report 5290931-5 (Version None)
Quarter: 2007Q2

REPORT INFORMATION
  Report Type: 
  Country: None (occurrence: None)
  Receive Date: 20070409
  Receipt Date: 20070327
  Transmission Date: 20071010
  Serious: Yes (Other)
  Sender: FDA-Public Use
  Company Number: JP-NOVOPROD-262179

PATIENT
  Age: 63 Year
  Sex: Male

DRUGS (1)
  1. NOVOLIN N [Suspect]
     Indication: INSULIN-REQUIRING TYPE II DIABETES MELLITUS
     Route: 058

REACTIONS (2)
  - HEMIPLEGIA [None]
  - HYPOGLYCAEMIA [None]
